FAERS Safety Report 8432270-7 (Version None)
Quarter: 2012Q2

REPORT INFORMATION
  Report Type: 
  Country: None (occurrence: None)
  Receive Date: 20120613
  Receipt Date: 20120607
  Transmission Date: 20120825
  Serious: No
  Sender: FDA-Public Use
  Company Number: PHHY2012JP031155

PATIENT
  Sex: Male
  Weight: 80 kg

DRUGS (8)
  1. DESFERAL [Suspect]
     Indication: IRON OVERLOAD
     Route: 030
     Dates: start: 20080509
  2. NOVORAPID [Concomitant]
     Dates: start: 20090803
  3. PROMAC                                  /JPN/ [Suspect]
     Indication: PROPHYLAXIS
     Dosage: 150 MG,
     Route: 048
     Dates: start: 20090803
  4. EXJADE [Suspect]
     Dosage: 1500 MG, DAILY
     Route: 048
     Dates: start: 20080806, end: 20090803
  5. NEORAL [Concomitant]
     Indication: APLASTIC ANAEMIA
     Dosage: 200 MG,
     Route: 048
     Dates: start: 20090803
  6. GRAN [Concomitant]
     Indication: APLASTIC ANAEMIA
     Dates: start: 20090803
  7. EXJADE [Suspect]
     Indication: IRON OVERLOAD
     Dosage: 1250 MG, DAILY
     Route: 048
     Dates: start: 20080723, end: 20080805
  8. LANSOPRAZOLE [Concomitant]
     Indication: PROPHYLAXIS
     Dosage: 15 MG
     Route: 048
     Dates: start: 20090803

REACTIONS (1)
  - THERAPEUTIC RESPONSE DECREASED [None]
